FAERS Safety Report 18379515 (Version 3)
Quarter: 2020Q4

REPORT INFORMATION
  Report Type: Spontaneous
  Country: JP (occurrence: JP)
  Receive Date: 20201014
  Receipt Date: 20201019
  Transmission Date: 20210114
  Serious: No
  Sender: FDA-Public Use
  Company Number: JP-SAKK-2020SA281815AA

PATIENT

DRUGS (1)
  1. DUPIXENT [Suspect]
     Active Substance: DUPILUMAB
     Indication: DERMATITIS ATOPIC
     Dosage: 1 SYRINGE
     Route: 058
     Dates: start: 20201001

REACTIONS (4)
  - Injection site pain [Unknown]
  - Intentional underdose [Unknown]
  - Hyperventilation [Unknown]
  - Peripheral coldness [Unknown]

NARRATIVE: CASE EVENT DATE: 20201001
